FAERS Safety Report 9463838 (Version 2)
Quarter: 2013Q3

REPORT INFORMATION
  Report Type: Spontaneous
  Country: SG (occurrence: SG)
  Receive Date: 20130819
  Receipt Date: 20130822
  Transmission Date: 20140515
  Serious: Yes (Hospitalization, Other)
  Sender: FDA-Public Use
  Company Number: SG-PFIZER INC-2013237079

PATIENT
  Age: 40 Year
  Sex: Female
  Weight: 37 kg

DRUGS (4)
  1. CARBOPLATIN [Suspect]
     Indication: NEOPLASM MALIGNANT
     Dosage: 285 MG, CYCLIC
     Route: 042
     Dates: start: 20130617, end: 20130617
  2. DEXAMETHASONE [Concomitant]
     Indication: ANTIEMETIC SUPPORTIVE CARE
     Dosage: 8 MG, UNK
     Route: 042
     Dates: start: 20130617, end: 20130617
  3. GEMCITABINE [Concomitant]
     Indication: NEOPLASM MALIGNANT
     Dosage: 750 MG, UNK
     Route: 042
     Dates: start: 20130617, end: 20130617
  4. GRANISETRON [Concomitant]
     Indication: ANTIEMETIC SUPPORTIVE CARE
     Dosage: 3 MG, UNK
     Route: 042
     Dates: start: 20130617, end: 20130617

REACTIONS (4)
  - Hypotension [Recovered/Resolved]
  - Facial spasm [Recovered/Resolved]
  - Pruritus [Recovered/Resolved]
  - Chills [Recovered/Resolved]
